FAERS Safety Report 6238013-X (Version None)
Quarter: 2009Q2

REPORT INFORMATION
  Report Type: 
  Country: None (occurrence: None)
  Receive Date: 20090622
  Receipt Date: 20090612
  Transmission Date: 20091009
  Serious: Yes (Death, Other)
  Sender: FDA-Public Use
  Company Number: US-BRISTOL-MYERS SQUIBB COMPANY-14663561

PATIENT
  Age: 24 Year
  Sex: Male

DRUGS (5)
  1. ARIPIPRAZOLE [Suspect]
  2. TRAZODONE HCL [Suspect]
  3. SERTRALINE [Suspect]
  4. METHAMPHETAMINE HYDROCHLORIDE [Suspect]
  5. LITHIUM CARBONATE [Suspect]

REACTIONS (2)
  - HYPERTHERMIA [None]
  - OVERDOSE [None]
